APPROVED DRUG PRODUCT: CYTARABINE
Active Ingredient: CYTARABINE
Strength: 100MG/ML
Dosage Form/Route: INJECTABLE;INJECTION
Application: A201784 | Product #001 | TE Code: AP
Applicant: RISING PHARMA HOLDING INC
Approved: Jan 30, 2012 | RLD: No | RS: No | Type: RX